FAERS Safety Report 9061460 (Version 4)
Quarter: 2013Q3

REPORT INFORMATION
  Report Type: Report from Study
  Country: US (occurrence: US)
  Receive Date: 20130204
  Receipt Date: 20130912
  Transmission Date: 20140515
  Serious: Yes (Hospitalization)
  Sender: FDA-Public Use
  Company Number: US-ELI_LILLY_AND_COMPANY-US201206003745

PATIENT
  Age: 80 Year
  Sex: Female
  Weight: 70.75 kg

DRUGS (13)
  1. TERIPARATIDE [Suspect]
     Indication: OSTEOPOROSIS
     Dosage: 20 UG, QD
     Dates: start: 20120401
  2. TERIPARATIDE [Suspect]
     Dosage: 20 UG, QD
  3. TERIPARATIDE [Suspect]
     Dosage: 20 UG, QD
  4. TERIPARATIDE [Suspect]
     Dosage: 20 UG, QD
     Dates: start: 20121019
  5. TERIPARATIDE [Suspect]
     Dosage: 20 UG, QD
  6. TERIPARATIDE [Suspect]
     Dosage: 20 UG, QD
  7. CALCIUM [Concomitant]
     Dosage: UNK
  8. VITAMIN D [Concomitant]
     Dosage: UNK
  9. AMLODIPINE [Concomitant]
     Indication: HYPERTENSION
     Dosage: UNK
  10. BUPROPION                          /00700502/ [Concomitant]
     Indication: ANXIETY
     Dosage: UNK
  11. LEXAPRO [Concomitant]
     Indication: WEIGHT INCREASED
     Dosage: UNK
  12. DULCOLAX [Concomitant]
     Dosage: UNK
  13. OMEPRAZOLE [Concomitant]
     Indication: ANTACID THERAPY
     Dosage: UNK

REACTIONS (12)
  - Pituitary tumour benign [Recovered/Resolved]
  - Injection site erythema [Unknown]
  - Nervousness [Recovered/Resolved]
  - Fear [Recovered/Resolved]
  - Lethargy [Unknown]
  - Injection site erythema [Unknown]
  - Fatigue [Not Recovered/Not Resolved]
  - Nervousness [Unknown]
  - Injection site pain [Recovered/Resolved]
  - Drug administered at inappropriate site [Unknown]
  - Depressed mood [Unknown]
  - Drug dose omission [Unknown]
